FAERS Safety Report 4712198-6 (Version None)
Quarter: 2005Q3

REPORT INFORMATION
  Report Type: 
  Country: None (occurrence: None)
  Receive Date: 20050712
  Receipt Date: 20050114
  Transmission Date: 20060218
  Serious: Yes (Other)
  Sender: FDA-Public Use
  Company Number: FR-BRISTOL-MYERS SQUIBB COMPANY-12824587

PATIENT
  Age: 34 Year
  Sex: Male

DRUGS (3)
  1. RISPERIDONE [Suspect]
     Indication: SCHIZOPHRENIA
     Route: 048
     Dates: start: 20041008, end: 20050121
  2. ATIVAN [Concomitant]
     Dates: start: 20040921
  3. CLONAZEPAM [Concomitant]
     Dates: start: 20041127

REACTIONS (2)
  - HYPONATRAEMIA [None]
  - POLYDIPSIA PSYCHOGENIC [None]
